FAERS Safety Report 5627861-2 (Version None)
Quarter: 2008Q1

REPORT INFORMATION
  Report Type: 
  Country: None (occurrence: None)
  Receive Date: 20080213
  Receipt Date: 20080213
  Transmission Date: 20080703
  Serious: Yes (Disabling)
  Sender: FDA-Public Use
  Company Number: None

PATIENT
  Age: 56 Year
  Sex: Female
  Weight: 63.5036 kg

DRUGS (1)
  1. NAIR HAIR REMOVAL FOR THE FACE TYPICAL OVER THE NAIR COUNTER [Suspect]
     Indication: HYPERTRICHOSIS
     Dosage: ONE TIME FOR 3 MINUTES; ONCE
     Dates: start: 20080203, end: 20080203

REACTIONS (9)
  - BURNING SENSATION [None]
  - DRUG INEFFECTIVE [None]
  - ERYTHEMA [None]
  - EYE SWELLING [None]
  - PARAESTHESIA [None]
  - PRURITUS [None]
  - SKIN DISORDER [None]
  - SKIN TIGHTNESS [None]
  - SWELLING [None]
